FAERS Safety Report 24995598 (Version 5)
Quarter: 2025Q2

REPORT INFORMATION
  Report Type: Spontaneous
  Country: GR (occurrence: GR)
  Receive Date: 20250221
  Receipt Date: 20250404
  Transmission Date: 20250717
  Serious: No
  Sender: PFIZER
  Company Number: GR-PFIZER INC-PV202500019799

PATIENT
  Age: 5 Year
  Sex: Female
  Weight: 15.5 kg

DRUGS (1)
  1. GENOTROPIN [Suspect]
     Active Substance: SOMATROPIN
     Indication: Body height decreased
     Dosage: 0.5 MG, DAILY, 6 DAYS, 1 DAY OFF (SATURDAY)
     Route: 058
     Dates: start: 202412

REACTIONS (3)
  - Device physical property issue [Recovered/Resolved]
  - Device mechanical issue [Recovered/Resolved]
  - Drug dose omission by device [Recovered/Resolved]

NARRATIVE: CASE EVENT DATE: 20250216
